FAERS Safety Report 5598158-4 (Version None)
Quarter: 2007Q4

REPORT INFORMATION
  Report Type: 
  Country: None (occurrence: None)
  Receive Date: 20071226
  Receipt Date: 20070910
  Transmission Date: 20080405
  Serious: No
  Sender: FDA-Public Use
  Company Number: 2007PV033423

PATIENT
  Age: 63 Year
  Sex: Female

DRUGS (2)
  1. SYMLIN [Suspect]
     Indication: TYPE 1 DIABETES MELLITUS
     Dosage: 12 MCG; TID, SC
     Route: 058
     Dates: start: 20070909
  2. NOVOLOG [Concomitant]

REACTIONS (2)
  - DIZZINESS [None]
  - PARAESTHESIA ORAL [None]
